FAERS Safety Report 4276520-X (Version None)
Quarter: 2004Q1

REPORT INFORMATION
  Report Type: 
  Country: None (occurrence: None)
  Receive Date: 20040120
  Receipt Date: 20040107
  Transmission Date: 20041129
  Serious: Yes (Hospitalization)
  Sender: FDA-Public Use
  Company Number: 2004001344

PATIENT
  Age: 53 Year
  Sex: Female

DRUGS (2)
  1. LITHIUM CARBONATE [Suspect]
     Indication: ILL-DEFINED DISORDER
     Dosage: 1350 MG (DAILY)
  2. CELECOXIB (CELECOXIB) [Suspect]
     Indication: ILL-DEFINED DISORDER

REACTIONS (6)
  - ASTHENIA [None]
  - DRUG INTERACTION POTENTIATION [None]
  - DRUG LEVEL INCREASED [None]
  - NAUSEA [None]
  - TREMOR [None]
  - VOMITING [None]
